FAERS Safety Report 15264586 (Version 4)
Quarter: 2019Q4

REPORT INFORMATION
  Report Type: Spontaneous
  Country: US (occurrence: US)
  Receive Date: 20180810
  Receipt Date: 20191125
  Transmission Date: 20200122
  Serious: Yes (Other)
  Sender: FDA-Public Use
  Company Number: US-JNJFOC-20180735054

PATIENT
  Sex: Male

DRUGS (1)
  1. ZYTIGA [Suspect]
     Active Substance: ABIRATERONE ACETATE
     Indication: PRODUCT USED FOR UNKNOWN INDICATION
     Route: 048

REACTIONS (7)
  - Hot flush [Unknown]
  - Pruritus [Unknown]
  - Back pain [Unknown]
  - Constipation [Unknown]
  - Renal disorder [Unknown]
  - Visual impairment [Unknown]
  - Fatigue [Unknown]
